FAERS Safety Report 6805235-6 (Version None)
Quarter: 2010Q2

REPORT INFORMATION
  Report Type: 
  Country: None (occurrence: None)
  Receive Date: 20100628
  Receipt Date: 20070928
  Transmission Date: 20101027
  Serious: Yes (Other)
  Sender: FDA-Public Use
  Company Number: US-PFIZER INC-2007081756

PATIENT
  Sex: Female
  Weight: 61.2 kg

DRUGS (3)
  1. SUTENT [Suspect]
     Indication: GASTROINTESTINAL STROMAL TUMOUR
     Dosage: EVERY DAY
     Route: 048
     Dates: start: 20070827
  2. SUTENT [Suspect]
     Dosage: EVERY DAY
     Route: 048
     Dates: start: 20070910
  3. NITROFURANTOIN [Concomitant]

REACTIONS (8)
  - BLOOD POTASSIUM DECREASED [None]
  - DIARRHOEA [None]
  - DRY MOUTH [None]
  - FATIGUE [None]
  - HAEMOGLOBIN DECREASED [None]
  - PALMAR-PLANTAR ERYTHRODYSAESTHESIA SYNDROME [None]
  - RED BLOOD CELL COUNT DECREASED [None]
  - WHITE BLOOD CELL COUNT DECREASED [None]
